FAERS Safety Report 23865922 (Version 6)
Quarter: 2025Q4

REPORT INFORMATION
  Report Type: Report from Study
  Country: US (occurrence: US)
  Receive Date: 20240517
  Receipt Date: 20251203
  Transmission Date: 20260117
  Serious: Yes (Hospitalization, Other)
  Sender: TAKEDA
  Company Number: US-TAKEDA-2024TUS048644

PATIENT
  Sex: Male

DRUGS (4)
  1. ADVATE [Suspect]
     Active Substance: ANTIHEMOPHILIC FACTOR, HUMAN RECOMBINANT
     Indication: Product used for unknown indication
     Dosage: 258 INTERNATIONAL UNIT
  2. ADVATE [Suspect]
     Active Substance: ANTIHEMOPHILIC FACTOR, HUMAN RECOMBINANT
     Dosage: 285 INTERNATIONAL UNIT
  3. ADVATE [Suspect]
     Active Substance: ANTIHEMOPHILIC FACTOR, HUMAN RECOMBINANT
     Dosage: 258 INTERNATIONAL UNIT
  4. ADVATE [Suspect]
     Active Substance: ANTIHEMOPHILIC FACTOR, HUMAN RECOMBINANT
     Dosage: 285 INTERNATIONAL UNIT

REACTIONS (4)
  - Seizure [Unknown]
  - Meningitis viral [Unknown]
  - Blood sodium increased [Unknown]
  - Dehydration [Unknown]

NARRATIVE: CASE EVENT DATE: 20240430
